FAERS Safety Report 6495399-9 (Version None)
Quarter: 2009Q4

REPORT INFORMATION
  Report Type: 
  Country: None (occurrence: None)
  Receive Date: 20091214
  Receipt Date: 20090616
  Transmission Date: 20100525
  Serious: No
  Sender: FDA-Public Use
  Company Number: US-BRISTOL-MYERS SQUIBB COMPANY-14665368

PATIENT
  Age: 61 Year
  Sex: Female
  Weight: 75 kg

DRUGS (1)
  1. ABILIFY [Suspect]
     Indication: BIPOLAR DISORDER
     Dosage: INCREASED TO 30MG/D IN 2008
     Dates: start: 20070101

REACTIONS (5)
  - DEPRESSED MOOD [None]
  - DYSKINESIA [None]
  - FALL [None]
  - GASTRIC DISORDER [None]
  - MEMORY IMPAIRMENT [None]
